FAERS Safety Report 8248091-4 (Version None)
Quarter: 2012Q1

REPORT INFORMATION
  Report Type: 
  Country: None (occurrence: None)
  Receive Date: 20120330
  Receipt Date: 20120320
  Transmission Date: 20120608
  Serious: Yes (Other)
  Sender: FDA-Public Use
  Company Number: CA-JNJFOC-20120310142

PATIENT
  Sex: Female
  Weight: 53 kg

DRUGS (8)
  1. PIROXICAM [Concomitant]
     Route: 048
  2. REMICADE [Suspect]
     Indication: ANKYLOSING SPONDYLITIS
     Route: 042
  3. DETROL [Concomitant]
     Route: 048
  4. EMPRACET [Concomitant]
  5. NEXIUM [Concomitant]
     Route: 048
  6. AMOXIL [Concomitant]
     Route: 048
  7. REMICADE [Suspect]
     Indication: UVEITIS
     Route: 042
  8. MYCOPHENOLATE MOFETIL (CELLCEPT) [Concomitant]
     Route: 048

REACTIONS (2)
  - BREAST MASS [None]
  - RENAL COLIC [None]
